FAERS Safety Report 9367058 (Version 1)
Quarter: 2013Q2

REPORT INFORMATION
  Report Type: Report from Study
  Country: GB (occurrence: GB)
  Receive Date: 20130625
  Receipt Date: 20130625
  Transmission Date: 20140414
  Serious: Yes (Life-Threatening, Hospitalization)
  Sender: FDA-Public Use
  Company Number: GB-BAXTER-2013BAX022654

PATIENT
  Age: 57 Year
  Sex: Female

DRUGS (30)
  1. CYCLOPHOSPHAMIDE INJECTION 1G [Suspect]
     Indication: DIFFUSE LARGE B-CELL LYMPHOMA
     Route: 065
  2. CYCLOPHOSPHAMIDE INJECTION 1G [Suspect]
     Route: 065
     Dates: start: 20130412
  3. CYCLOPHOSPHAMIDE INJECTION 1G [Suspect]
     Route: 065
     Dates: start: 20130513
  4. CYCLOPHOSPHAMIDE INJECTION 1G [Suspect]
     Route: 065
     Dates: start: 20130603
  5. DOXORUBICIN HYDROCHLORIDE [Suspect]
     Indication: DIFFUSE LARGE B-CELL LYMPHOMA
     Route: 065
  6. DOXORUBICIN HYDROCHLORIDE [Suspect]
     Route: 065
     Dates: start: 20130412
  7. DOXORUBICIN HYDROCHLORIDE [Suspect]
     Route: 065
     Dates: start: 20130513
  8. DOXORUBICIN HYDROCHLORIDE [Suspect]
     Route: 065
     Dates: start: 20130603
  9. PREDNISONE [Suspect]
     Indication: DIFFUSE LARGE B-CELL LYMPHOMA
     Route: 065
  10. PREDNISONE [Suspect]
     Route: 065
     Dates: start: 20130412
  11. PREDNISONE [Suspect]
     Route: 065
     Dates: start: 20130513
  12. PREDNISONE [Suspect]
     Route: 065
     Dates: start: 20130603
  13. RITUXIMAB [Suspect]
     Indication: DIFFUSE LARGE B-CELL LYMPHOMA
     Dosage: 850 UNIT NOT REPORTED
     Route: 042
     Dates: start: 20130321, end: 20130321
  14. RITUXIMAB [Suspect]
     Route: 042
     Dates: start: 20130322
  15. VINCRISTINE SULFATE [Suspect]
     Indication: DIFFUSE LARGE B-CELL LYMPHOMA
     Route: 065
  16. VINCRISTINE SULFATE [Suspect]
     Route: 065
     Dates: start: 20130412
  17. VINCRISTINE SULFATE [Suspect]
     Route: 065
     Dates: start: 20130513
  18. VINCRISTINE SULFATE [Suspect]
     Route: 065
     Dates: start: 20130603
  19. METOCLOPRAMIDE [Concomitant]
     Indication: PRODUCT USED FOR UNKNOWN INDICATION
     Route: 048
  20. METFORMIN HYDROCHLORIDE [Concomitant]
     Indication: PRODUCT USED FOR UNKNOWN INDICATION
     Route: 048
  21. SIMVASTATIN [Concomitant]
     Indication: PRODUCT USED FOR UNKNOWN INDICATION
     Route: 048
  22. BISOPROLOL [Concomitant]
     Indication: PRODUCT USED FOR UNKNOWN INDICATION
     Route: 048
  23. BENDROFLUMETHIAZIDE [Concomitant]
     Indication: PRODUCT USED FOR UNKNOWN INDICATION
     Route: 048
  24. OMEPRAZOLE [Concomitant]
     Indication: PRODUCT USED FOR UNKNOWN INDICATION
     Route: 048
  25. SERETIDE [Concomitant]
     Indication: PRODUCT USED FOR UNKNOWN INDICATION
     Dosage: 2 PUFFS
  26. LACIDIPINE [Concomitant]
     Indication: PRODUCT USED FOR UNKNOWN INDICATION
     Route: 048
  27. PREDNISOLONE [Concomitant]
     Indication: PROPHYLAXIS
     Route: 048
  28. PARACETAMOL [Concomitant]
     Indication: PREMEDICATION
     Route: 048
  29. PARACETAMOL [Concomitant]
     Route: 048
  30. CHLORPHENIRAMINE MALEATE [Concomitant]
     Indication: PREMEDICATION
     Route: 042

REACTIONS (5)
  - Flushing [Recovered/Resolved]
  - Hypoxia [Recovered/Resolved]
  - Infusion related reaction [Recovered/Resolved]
  - Tachycardia [Recovered/Resolved]
  - Dyspnoea [Recovered/Resolved]
